FAERS Safety Report 5061334-3 (Version None)
Quarter: 2006Q3

REPORT INFORMATION
  Report Type: 
  Country: None (occurrence: None)
  Receive Date: 20060719
  Receipt Date: 20060719
  Transmission Date: 20061208
  Serious: Yes (Hospitalization)
  Sender: FDA-Public Use
  Company Number: None

PATIENT
  Sex: Male
  Weight: 99.2 kg

DRUGS (1)
  1. ASPART INSULIN [Suspect]
     Indication: DIABETES MELLITUS
     Dosage: 5 UNITS TID SQ
     Route: 058
     Dates: start: 20060504, end: 20060528

REACTIONS (3)
  - INADEQUATE DIET [None]
  - SYNCOPE [None]
  - TREATMENT NONCOMPLIANCE [None]
